FAERS Safety Report 4888173-8 (Version None)
Quarter: 2006Q1

REPORT INFORMATION
  Report Type: 
  Country: None (occurrence: None)
  Receive Date: 20060119
  Receipt Date: 20060109
  Transmission Date: 20060701
  Serious: Yes (Other)
  Sender: FDA-Public Use
  Company Number: 2006006097

PATIENT
  Sex: Male

DRUGS (1)
  1. CELEBREX [Suspect]
     Indication: MONARTHRITIS
     Dates: start: 20040101, end: 20060101

REACTIONS (1)
  - ELECTROCARDIOGRAM ABNORMAL [None]
